FAERS Safety Report 11927482 (Version 1)
Quarter: 2016Q1

REPORT INFORMATION
  Report Type: Spontaneous
  Country: US (occurrence: None)
  Receive Date: 20160115
  Receipt Date: 20160115
  Transmission Date: 20160526
  Serious: Yes (Other)
  Sender: FDA-Public Use
  Company Number: None

PATIENT
  Age: 29 Year
  Sex: Female
  Weight: 68.04 kg

DRUGS (1)
  1. SERTRALINE [Suspect]
     Active Substance: SERTRALINE HYDROCHLORIDE
     Indication: DEPRESSION
     Route: 048
     Dates: start: 20140131, end: 20160101

REACTIONS (7)
  - Feeling drunk [None]
  - Pyrexia [None]
  - Fatigue [None]
  - Confusional state [None]
  - Paraesthesia [None]
  - Drug withdrawal syndrome [None]
  - Dizziness [None]

NARRATIVE: CASE EVENT DATE: 20160114
